FAERS Safety Report 7096519-8 (Version None)
Quarter: 2010Q4

REPORT INFORMATION
  Report Type: 
  Country: None (occurrence: None)
  Receive Date: 20101111
  Receipt Date: 20101104
  Transmission Date: 20110411
  Serious: Yes (Hospitalization)
  Sender: FDA-Public Use
  Company Number: A0885342A

PATIENT
  Age: 5 Year
  Sex: Male

DRUGS (2)
  1. FLIXOTIDE [Suspect]
     Indication: ACCIDENTAL DRUG INTAKE BY CHILD
     Dosage: 100PUFF SINGLE DOSE
     Route: 055
     Dates: start: 20100928, end: 20100928
  2. UNKNOWN [Concomitant]

REACTIONS (5)
  - ACCIDENTAL DRUG INTAKE BY CHILD [None]
  - HYPOAESTHESIA ORAL [None]
  - OVERDOSE [None]
  - SENSORY DISTURBANCE [None]
  - WRONG DRUG ADMINISTERED [None]
